FAERS Safety Report 17821615 (Version 2)
Quarter: 2020Q3

REPORT INFORMATION
  Report Type: Spontaneous
  Country: IT (occurrence: IT)
  Receive Date: 20200525
  Receipt Date: 20200818
  Transmission Date: 20201102
  Serious: Yes (Hospitalization)
  Sender: FDA-Public Use
  Company Number: IT-CELGENEUS-ITA-20200506828

PATIENT
  Age: 63 Year
  Sex: Male
  Weight: 85 kg

DRUGS (20)
  1. LENALIDOMIDE [Suspect]
     Active Substance: LENALIDOMIDE
     Indication: PLASMA CELL MYELOMA
     Dosage: 20 MILLIGRAM
     Route: 048
     Dates: start: 20190916, end: 20191222
  2. LENALIDOMIDE [Suspect]
     Active Substance: LENALIDOMIDE
     Dosage: 25 MILLIGRAM
     Route: 048
     Dates: start: 20190916, end: 20191001
  3. METFORAL [Concomitant]
     Active Substance: METFORMIN HYDROCHLORIDE
     Indication: DIABETES MELLITUS
     Dosage: 1500 MILLIGRAM
     Route: 048
     Dates: start: 2013, end: 20200103
  4. PARACETAMOL [Concomitant]
     Active Substance: ACETAMINOPHEN
     Route: 048
     Dates: start: 20190902
  5. ACYCLOVIR. [Concomitant]
     Active Substance: ACYCLOVIR
     Indication: ANTIVIRAL PROPHYLAXIS
     Dosage: 800 MILLIGRAM
     Route: 048
     Dates: start: 20190916
  6. DEXAMETHASONE. [Suspect]
     Active Substance: DEXAMETHASONE
     Indication: PLASMA CELL MYELOMA
     Dosage: 40 MILLIGRAM
     Route: 048
     Dates: start: 20190916, end: 20191221
  7. BORTEZOMIB. [Concomitant]
     Active Substance: BORTEZOMIB
     Indication: PLASMA CELL MYELOMA
     Dosage: 2.6 MILLIGRAM
     Route: 058
     Dates: start: 20190916, end: 20191220
  8. NEBIVOLOL HYDROCHLORIDE [Concomitant]
     Active Substance: NEBIVOLOL HYDROCHLORIDE
     Indication: HYPERTENSION
     Dosage: 5 MILLIGRAM
     Route: 048
     Dates: start: 2015
  9. FENTANYL CITRATE. [Concomitant]
     Active Substance: FENTANYL CITRATE
     Indication: PAIN PROPHYLAXIS
     Route: 060
     Dates: start: 20191004
  10. LUCEN [Concomitant]
     Active Substance: ESOMEPRAZOLE
     Indication: GASTRITIS PROPHYLAXIS
     Route: 048
     Dates: start: 20190820
  11. ATORVASTATIN [Concomitant]
     Active Substance: ATORVASTATIN
     Indication: BLOOD CHOLESTEROL INCREASED
     Dosage: 20 MILLIGRAM
     Route: 048
     Dates: start: 2015
  12. BACTRIM [Concomitant]
     Active Substance: SULFAMETHOXAZOLE\TRIMETHOPRIM
     Indication: ANTIFUNGAL PROPHYLAXIS
     Dosage: 1 CAPSULE
     Route: 048
     Dates: start: 20190916
  13. FORXIGA [Concomitant]
     Active Substance: DAPAGLIFLOZIN
     Indication: DIABETES MELLITUS
     Dosage: 10 MILLIGRAM
     Route: 048
     Dates: start: 20191002, end: 20200103
  14. PANTOPRAZOLE [Concomitant]
     Active Substance: PANTOPRAZOLE
     Indication: GASTRITIS PROPHYLAXIS
     Dosage: 200 MILLIGRAM
     Route: 048
     Dates: start: 20190916
  15. ORAMORPH [Concomitant]
     Active Substance: MORPHINE SULFATE
     Indication: PAIN PROPHYLAXIS
     Dosage: 10 MILLIGRAM
     Route: 048
     Dates: start: 20191004, end: 20191210
  16. ORAMORPH [Concomitant]
     Active Substance: MORPHINE SULFATE
     Indication: SPINAL PAIN
  17. CLEXANE [Concomitant]
     Active Substance: ENOXAPARIN SODIUM
     Dosage: 4000 IU (INTERNATIONAL UNIT)
     Route: 058
     Dates: start: 20191007, end: 20191223
  18. PARACETAMOL [Concomitant]
     Active Substance: ACETAMINOPHEN
     Indication: SPINAL PAIN
     Route: 048
     Dates: start: 20190902
  19. NALOXEGOL [Concomitant]
     Active Substance: NALOXEGOL
     Indication: CONSTIPATION PROPHYLAXIS
     Dosage: 25 MILLIGRAM
     Route: 048
     Dates: start: 20191004, end: 20191210
  20. CLEXANE [Concomitant]
     Active Substance: ENOXAPARIN SODIUM
     Indication: THROMBOSIS PROPHYLAXIS
     Dosage: 4000 IU (INTERNATIONAL UNIT)
     Route: 058
     Dates: start: 20190916, end: 201912

REACTIONS (1)
  - Colitis ulcerative [Recovered/Resolved]

NARRATIVE: CASE EVENT DATE: 20191222
